FAERS Safety Report 7563166-0 (Version None)
Quarter: 2011Q2

REPORT INFORMATION
  Report Type: 
  Country: None (occurrence: None)
  Receive Date: 20110622
  Receipt Date: 20110606
  Transmission Date: 20111010
  Serious: No
  Sender: FDA-Public Use
  Company Number: US-B.I. PHARMACEUTICALS,INC./RIDGEFIELD-2011-BP-14790BP

PATIENT
  Sex: Female

DRUGS (4)
  1. ATACAND [Concomitant]
     Indication: HYPERTENSION
  2. DIGOXIN [Concomitant]
     Indication: ATRIAL FIBRILLATION
  3. DILTIAZEM [Concomitant]
     Indication: HYPERTENSION
  4. PRADAXA [Suspect]
     Indication: ATRIAL FIBRILLATION
     Dosage: 300 MG
     Route: 048
     Dates: start: 20110603

REACTIONS (3)
  - SENSATION OF FOREIGN BODY [None]
  - DYSPEPSIA [None]
  - DYSGEUSIA [None]
